FAERS Safety Report 15862611 (Version 1)
Quarter: 2019Q1

REPORT INFORMATION
  Report Type: Spontaneous
  Country: US (occurrence: US)
  Receive Date: 20190124
  Receipt Date: 20190124
  Transmission Date: 20190417
  Serious: Yes (Life-Threatening, Disabling, Other)
  Sender: FDA-Public Use
  Company Number: None

PATIENT
  Age: 32 Year
  Sex: Female
  Weight: 54.9 kg

DRUGS (4)
  1. KETAMINE HCL [Suspect]
     Active Substance: KETAMINE HYDROCHLORIDE
     Indication: POST-TRAUMATIC STRESS DISORDER
     Dosage: ?          QUANTITY:30 TROCHE;?
     Route: 048
     Dates: start: 20181205, end: 20190102
  2. KETAMINE HCL [Suspect]
     Active Substance: KETAMINE HYDROCHLORIDE
     Indication: MAJOR DEPRESSION
     Dosage: ?          QUANTITY:30 TROCHE;?
     Route: 048
     Dates: start: 20181205, end: 20190102
  3. KETAMINE HCL [Suspect]
     Active Substance: KETAMINE HYDROCHLORIDE
     Indication: GENERALISED ANXIETY DISORDER
     Dosage: ?          QUANTITY:30 TROCHE;?
     Route: 048
     Dates: start: 20181205, end: 20190102
  4. KETAMINE HCL [Suspect]
     Active Substance: KETAMINE HYDROCHLORIDE
     Indication: FIBROMYALGIA
     Dosage: ?          QUANTITY:30 TROCHE;?
     Route: 048
     Dates: start: 20181205, end: 20190102

REACTIONS (3)
  - Psychotic disorder [None]
  - Craniocerebral injury [None]
  - Delusion [None]

NARRATIVE: CASE EVENT DATE: 20190103
